FAERS Safety Report 5464710-X (Version None)
Quarter: 2007Q3

REPORT INFORMATION
  Report Type: 
  Country: None (occurrence: None)
  Receive Date: 20070921
  Receipt Date: 20070910
  Transmission Date: 20080115
  Serious: Yes (Other)
  Sender: FDA-Public Use
  Company Number: US-PFIZER INC-2007040859

PATIENT
  Age: 55 Year
  Sex: Female
  Weight: 78.9 kg

DRUGS (6)
  1. CHANTIX [Suspect]
     Indication: SMOKING CESSATION THERAPY
     Route: 048
     Dates: start: 20070423, end: 20070101
  2. ALL OTHER THERAPEUTIC PRODUCTS [Concomitant]
  3. CALCIUM [Concomitant]
  4. VITAMIN E [Concomitant]
  5. ASCORBIC ACID [Concomitant]
  6. BEE POLLEN [Concomitant]

REACTIONS (1)
  - VISUAL ACUITY REDUCED [None]
